FAERS Safety Report 6688746-6 (Version None)
Quarter: 2010Q2

REPORT INFORMATION
  Report Type: 
  Country: None (occurrence: None)
  Receive Date: 20100420
  Receipt Date: 20100412
  Transmission Date: 20101027
  Serious: Yes (Hospitalization)
  Sender: FDA-Public Use
  Company Number: B0646667A

PATIENT
  Sex: Male

DRUGS (9)
  1. PURINETHOL [Suspect]
     Route: 048
     Dates: end: 20100315
  2. ZELITREX [Suspect]
     Indication: DRUG USE FOR UNKNOWN INDICATION
     Dosage: 500MG TWICE PER DAY
     Route: 065
     Dates: start: 20100215, end: 20100330
  3. AUGMENTIN '125' [Suspect]
     Indication: SINUSITIS
     Dosage: 2G UNKNOWN
     Route: 065
     Dates: start: 20100323, end: 20100330
  4. METHOTREXATE [Suspect]
     Route: 065
     Dates: end: 20100312
  5. BACTRIM DS [Suspect]
     Indication: DRUG USE FOR UNKNOWN INDICATION
     Route: 048
     Dates: start: 20100215, end: 20100323
  6. SOLUPRED [Suspect]
     Indication: SINUSITIS
     Dosage: 40MG UNKNOWN
     Route: 048
     Dates: start: 20100323, end: 20100325
  7. NASONEX [Suspect]
     Indication: DRUG USE FOR UNKNOWN INDICATION
     Route: 055
     Dates: start: 20100301, end: 20100301
  8. NEXIUM [Suspect]
     Indication: DRUG USE FOR UNKNOWN INDICATION
     Route: 065
     Dates: start: 20090910, end: 20100330
  9. AMLOR [Suspect]
     Indication: DRUG USE FOR UNKNOWN INDICATION
     Route: 065
     Dates: end: 20100330

REACTIONS (3)
  - AGRANULOCYTOSIS [None]
  - HEPATITIS [None]
  - THROMBOCYTOPENIA [None]
